FAERS Safety Report 10193247 (Version 1)
Quarter: 2014Q2

REPORT INFORMATION
  Report Type: Spontaneous
  Country: US (occurrence: US)
  Receive Date: 20140524
  Receipt Date: 20140524
  Transmission Date: 20141212
  Serious: No
  Sender: FDA-Public Use
  Company Number: US-SA-2013SA116841

PATIENT
  Sex: 0

DRUGS (1)
  1. LANTUS [Suspect]
     Dosage: DOSE:28 UNIT(S)
     Route: 051

REACTIONS (1)
  - Muscle spasms [Unknown]
